FAERS Safety Report 21867931 (Version 1)
Quarter: 2023Q1

REPORT INFORMATION
  Report Type: Spontaneous
  Country: US (occurrence: US)
  Receive Date: 20230116
  Receipt Date: 20230116
  Transmission Date: 20230417
  Serious: Yes (Life-Threatening)
  Sender: FDA-Public Use
  Company Number: US-PFIZER INC-202300016272

PATIENT
  Age: 44 Year
  Sex: Female
  Weight: 72.57 kg

DRUGS (3)
  1. PAXLOVID [Suspect]
     Active Substance: NIRMATRELVIR\RITONAVIR
     Indication: COVID-19 treatment
     Dosage: [PF-07321332 300 MG]/[RITONAVIR 100 MG]; 2X/DAY
     Dates: start: 20230109, end: 20230111
  2. GABAPENTIN [Concomitant]
     Active Substance: GABAPENTIN
     Indication: Musculoskeletal discomfort
     Dosage: 300 MG, 3X/DAY
     Dates: start: 20230108
  3. ORPHENADRINE CITRATE [Concomitant]
     Active Substance: ORPHENADRINE CITRATE
     Indication: Hypotonia
     Dosage: 100 MG, 2X/DAY
     Route: 048
     Dates: start: 20230109, end: 20230110

REACTIONS (5)
  - Dyspnoea [Recovered/Resolved]
  - Chest pain [Recovering/Resolving]
  - Cough [Recovered/Resolved]
  - Oxygen saturation decreased [Recovered/Resolved]
  - Wheezing [Recovered/Resolved]

NARRATIVE: CASE EVENT DATE: 20230109
